FAERS Safety Report 9302767 (Version 2)
Quarter: 2013Q2

REPORT INFORMATION
  Report Type: Report from Study
  Country: US (occurrence: US)
  Receive Date: 20130522
  Receipt Date: 20130529
  Transmission Date: 20140414
  Serious: Yes (Death)
  Sender: FDA-Public Use
  Company Number: PHEH2013US011166

PATIENT
  Sex: Male

DRUGS (17)
  1. TOBI [Suspect]
     Indication: METABOLIC DISORDER
     Dosage: 300 UG, BID
     Dates: start: 20130307
  2. SOURCECF PEDIATRIC [Concomitant]
  3. MEPHYTON [Concomitant]
  4. HYDROCODONE/ACETAMINOPHEN          /01554201/ [Concomitant]
  5. AZITHROMYCIN [Concomitant]
  6. ZINC SULFATE [Concomitant]
  7. ALBUTEROL [Concomitant]
  8. ZENPEP [Concomitant]
  9. METOPROLOL [Concomitant]
  10. NOVOLOG [Concomitant]
  11. CETIRIZINE HCL [Concomitant]
  12. MIRTAZAPINE [Concomitant]
  13. RANITIDINE HCL [Concomitant]
  14. PULMOZYME [Concomitant]
  15. MAGNESIUM [Concomitant]
  16. FERROUS SULFATE [Concomitant]
  17. ADVAIR DISKUS [Concomitant]

REACTIONS (1)
  - Respiratory failure [Fatal]
